FAERS Safety Report 8173993-7 (Version None)
Quarter: 2012Q1

REPORT INFORMATION
  Report Type: 
  Country: None (occurrence: None)
  Receive Date: 20120229
  Receipt Date: 20120220
  Transmission Date: 20120608
  Serious: Yes (Death)
  Sender: FDA-Public Use
  Company Number: GB-ROCHE-GNE321981

PATIENT
  Sex: Male

DRUGS (6)
  1. CO-DYDRAMOL [Concomitant]
  2. ASPIRIN [Concomitant]
  3. SIMVASTATIN [Concomitant]
  4. LUCENTIS [Suspect]
     Indication: PRODUCT USED FOR UNKNOWN INDICATION
  5. SYMBICORT [Concomitant]
  6. DIETHYL-STILBESTROL TAB [Concomitant]

REACTIONS (1)
  - PROSTATE CANCER METASTATIC [None]
